FAERS Safety Report 9761689 (Version 1)
Quarter: 2013Q4

REPORT INFORMATION
  Report Type: Spontaneous
  Country: GB (occurrence: GB)
  Receive Date: 20131216
  Receipt Date: 20131216
  Transmission Date: 20140711
  Serious: Yes (Hospitalization, Other)
  Sender: FDA-Public Use
  Company Number: GB-ACTAVIS-2013-22886

PATIENT
  Age: 66 Year
  Sex: Female

DRUGS (5)
  1. ZOLEDRONIC ACID (UNKNOWN) [Suspect]
     Indication: OSTEITIS DEFORMANS
     Dosage: DOSAGE: UNKNOWN
     Route: 042
     Dates: start: 20131104, end: 20131104
  2. SIMVASTATIN [Concomitant]
     Indication: HYPERLIPIDAEMIA
     Dosage: 40 MG, UNKNOWN; LONG-TERM
     Route: 048
  3. CITALOPRAM [Concomitant]
     Indication: DEPRESSION
     Dosage: 20MG AND 10MG. LONG-TERM.
     Route: 048
  4. LANSOPRAZOLE [Concomitant]
     Indication: GASTROOESOPHAGEAL REFLUX DISEASE
     Dosage: 30 MG, UNKNOWN
     Route: 048
  5. CANDESARTAN [Concomitant]
     Indication: HYPERTENSION
     Dosage: 2 MG, UNKNOWN; LONG-TERM
     Route: 048

REACTIONS (4)
  - Influenza like illness [Recovered/Resolved]
  - Chills [Recovered/Resolved]
  - Malaise [Recovered/Resolved]
  - Blood calcium decreased [Recovered/Resolved]
